FAERS Safety Report 5894589-3 (Version None)
Quarter: 2008Q3

REPORT INFORMATION
  Report Type: 
  Country: None (occurrence: None)
  Receive Date: 20080922
  Receipt Date: 20080909
  Transmission Date: 20090109
  Serious: Yes (Hospitalization)
  Sender: FDA-Public Use
  Company Number: 2008AL010229

PATIENT
  Age: 88 Year
  Sex: Female
  Weight: 43.9989 kg

DRUGS (1)
  1. DIGOXIN [Suspect]
     Indication: CARDIAC DISORDER
     Dosage: 0.25 MG, DAILY, PO
     Route: 048

REACTIONS (6)
  - ASTHENIA [None]
  - DEHYDRATION [None]
  - DIZZINESS [None]
  - FALL [None]
  - OVERDOSE [None]
  - RIB FRACTURE [None]
